FAERS Safety Report 24647867 (Version 1)
Quarter: 2024Q4

REPORT INFORMATION
  Report Type: Spontaneous
  Country: US (occurrence: None)
  Receive Date: 20241121
  Receipt Date: 20241121
  Transmission Date: 20250114
  Serious: Yes (Hospitalization)
  Sender: Public
  Company Number: None

PATIENT
  Age: 51 Year
  Sex: Male

DRUGS (1)
  1. APIXABAN [Suspect]
     Active Substance: APIXABAN
     Indication: Deep vein thrombosis
     Dosage: FREQUENCY : TWICE A DAY;?
     Route: 048
     Dates: end: 20241008

REACTIONS (4)
  - Deep vein thrombosis [None]
  - Deep vein thrombosis [None]
  - Therapy interrupted [None]
  - Deep vein thrombosis [None]

NARRATIVE: CASE EVENT DATE: 20241008
